FAERS Safety Report 22286416 (Version 1)
Quarter: 2023Q2

REPORT INFORMATION
  Report Type: Report from Study
  Country: US (occurrence: US)
  Receive Date: 20230505
  Receipt Date: 20230505
  Transmission Date: 20230721
  Serious: Yes (Other)
  Sender: FDA-Public Use
  Company Number: US-SPECGX-T202301092

PATIENT
  Age: 53 Year
  Sex: Female

DRUGS (3)
  1. OXYCODONE [Suspect]
     Active Substance: OXYCODONE
     Indication: Product used for unknown indication
     Dosage: 15 MILLIGRAM
     Route: 065
  2. CORTICOTROPIN [Suspect]
     Active Substance: CORTICOTROPIN
     Indication: Product used for unknown indication
     Dosage: UNK
     Route: 065
  3. METHOTREXATE [Concomitant]
     Active Substance: METHOTREXATE
     Indication: Diabetes mellitus
     Dosage: UNK
     Route: 065

REACTIONS (11)
  - Joint injury [Unknown]
  - Knee operation [Unknown]
  - Blood glucose increased [Recovering/Resolving]
  - Bedridden [Unknown]
  - Gait disturbance [Unknown]
  - Fibromyalgia [Unknown]
  - Administration site bruise [Unknown]
  - Injection site pain [Unknown]
  - Insomnia [Unknown]
  - Drug hypersensitivity [Unknown]
  - Vomiting [Unknown]

NARRATIVE: CASE EVENT DATE: 20230418
